FAERS Safety Report 15779736 (Version 2)
Quarter: 2019Q1

REPORT INFORMATION
  Report Type: Spontaneous
  Country: US (occurrence: US)
  Receive Date: 20190101
  Receipt Date: 20190125
  Transmission Date: 20190417
  Serious: No
  Sender: FDA-Public Use
  Company Number: US-ASTRAZENECA-2018SF61873

PATIENT
  Age: 26857 Day
  Sex: Female
  Weight: 81.6 kg

DRUGS (1)
  1. BYDUREON BCISE [Suspect]
     Active Substance: EXENATIDE
     Indication: TYPE 2 DIABETES MELLITUS
     Route: 058
     Dates: start: 20181207

REACTIONS (4)
  - Circumstance or information capable of leading to medication error [Unknown]
  - Device leakage [Unknown]
  - Injection site erythema [Unknown]
  - Device malfunction [Unknown]

NARRATIVE: CASE EVENT DATE: 20181207
